FAERS Safety Report 21329034 (Version 1)
Quarter: 2022Q3

REPORT INFORMATION
  Report Type: Spontaneous
  Country: US (occurrence: None)
  Receive Date: 20220913
  Receipt Date: 20220913
  Transmission Date: 20221027
  Serious: Yes (Hospitalization)
  Sender: FDA-Public Use
  Company Number: None

PATIENT
  Age: 59 Year
  Sex: Female
  Weight: 86 kg

DRUGS (1)
  1. SODIUM FERRIC GLUCONATE COMPLEX [Suspect]
     Active Substance: SODIUM FERRIC GLUCONATE COMPLEX
     Indication: Iron deficiency anaemia
     Dosage: FREQUENCY : ONCE;?
     Route: 042
     Dates: start: 20211014, end: 20211014

REACTIONS (7)
  - Arthralgia [None]
  - Anaphylactic reaction [None]
  - Tachypnoea [None]
  - Nausea [None]
  - Vomiting [None]
  - Angina pectoris [None]
  - Swelling [None]

NARRATIVE: CASE EVENT DATE: 20211014
